FAERS Safety Report 22284151 (Version 1)
Quarter: 2023Q2

REPORT INFORMATION
  Report Type: Spontaneous
  Country: US (occurrence: None)
  Receive Date: 20230503
  Receipt Date: 20230503
  Transmission Date: 20230722
  Serious: Yes (Hospitalization)
  Sender: FDA-Public Use
  Company Number: None

PATIENT
  Age: 38 Year
  Sex: Female

DRUGS (7)
  1. DEFERASIROX [Suspect]
     Active Substance: DEFERASIROX
     Indication: Haemochromatosis
     Dosage: FREQUENCY : DAILY;?
     Route: 048
     Dates: start: 20220726
  2. DEFERASIROX [Suspect]
     Active Substance: DEFERASIROX
     Dosage: FREQUENCY : DAILY;?
     Route: 048
  3. CLOPIDOGREL [Concomitant]
  4. FOLIC ACID [Concomitant]
     Active Substance: FOLIC ACID
  5. HYDROXYUREA POW [Concomitant]
  6. OMEPRAZOLE [Concomitant]
     Active Substance: OMEPRAZOLE
  7. ONDANSETRON [Concomitant]

REACTIONS (2)
  - Sickle cell anaemia [None]
  - Therapy interrupted [None]

NARRATIVE: CASE EVENT DATE: 20230401
